FAERS Safety Report 16779211 (Version 2)
Quarter: 2019Q3

REPORT INFORMATION
  Report Type: Spontaneous
  Country: JP (occurrence: JP)
  Receive Date: 20190906
  Receipt Date: 20190930
  Transmission Date: 20191005
  Serious: Yes (Other)
  Sender: FDA-Public Use
  Company Number: JP-GLAXOSMITHKLINE-JP2019JPN160648

PATIENT
  Age: 78 Year
  Sex: Male

DRUGS (3)
  1. HARNAL D TABLETS [Concomitant]
     Indication: DYSURIA
     Dosage: 0.2 MG, QD
     Route: 048
     Dates: end: 20190901
  2. ZALUTIA [Concomitant]
     Active Substance: TADALAFIL
     Indication: DYSURIA
     Dosage: UNK
     Dates: end: 20190901
  3. AVOLVE [Suspect]
     Active Substance: DUTASTERIDE
     Indication: BENIGN PROSTATIC HYPERPLASIA
     Dosage: 0.5 MG, QD
     Route: 048
     Dates: start: 201201

REACTIONS (4)
  - Urinary retention [Recovered/Resolved]
  - Urine output decreased [Unknown]
  - Pollakiuria [Unknown]
  - Dysuria [Unknown]

NARRATIVE: CASE EVENT DATE: 20190901
